FAERS Safety Report 16108606 (Version 1)
Quarter: 2019Q1

REPORT INFORMATION
  Report Type: Spontaneous
  Country: GB (occurrence: GB)
  Receive Date: 20190323
  Receipt Date: 20190323
  Transmission Date: 20190418
  Serious: Yes (Other)
  Sender: FDA-Public Use
  Company Number: GB-ACCORD-113922

PATIENT
  Age: 77 Year
  Sex: Male

DRUGS (6)
  1. METFORMIN [Concomitant]
     Active Substance: METFORMIN HYDROCHLORIDE
  2. TAMSULOSIN/TAMSULOSIN HYDROCHLORIDE [Concomitant]
  3. PIOGLITAZONE/PIOGLITAZONE HYDROCHLORIDE [Suspect]
     Active Substance: PIOGLITAZONE HYDROCHLORIDE
     Indication: DIABETES MELLITUS
     Route: 048
     Dates: start: 20161220, end: 20181116
  4. GABAPENTIN. [Concomitant]
     Active Substance: GABAPENTIN
  5. CANDESARTAN. [Concomitant]
     Active Substance: CANDESARTAN
  6. SIMVASTATIN TEVA [Concomitant]
     Active Substance: SIMVASTATIN

REACTIONS (2)
  - Haematuria [Unknown]
  - Bladder cancer [Unknown]

NARRATIVE: CASE EVENT DATE: 201810
